FAERS Safety Report 15307349 (Version 2)
Quarter: 2018Q3

REPORT INFORMATION
  Report Type: Spontaneous
  Country: US (occurrence: US)
  Receive Date: 20180822
  Receipt Date: 20180907
  Transmission Date: 20181010
  Serious: Yes (Other)
  Sender: FDA-Public Use
  Company Number: US-IMPAX LABORATORIES, INC-2018-IPXL-02793

PATIENT
  Age: 67 Year
  Sex: Female

DRUGS (6)
  1. APOKYN [Concomitant]
     Active Substance: APOMORPHINE HYDROCHLORIDE
     Indication: PRODUCT USED FOR UNKNOWN INDICATION
     Dosage: UNK, SHOTS
     Route: 065
     Dates: end: 2018
  2. RYTARY [Suspect]
     Active Substance: CARBIDOPA\LEVODOPA
     Indication: PARKINSON^S DISEASE
     Dosage: 61.25/245 MG, TWO CAPSULES, EVERY 8HR
     Route: 048
     Dates: end: 2018
  3. SELEGILINE [Concomitant]
     Active Substance: SELEGILINE
     Indication: PARKINSON^S DISEASE
     Dosage: UNK
     Route: 065
     Dates: end: 2018
  4. CLONAZEPAM. [Concomitant]
     Active Substance: CLONAZEPAM
     Indication: PARKINSON^S DISEASE
     Dosage: UNK
     Route: 065
     Dates: end: 2018
  5. PRAMIPEXOLE. [Concomitant]
     Active Substance: PRAMIPEXOLE
     Indication: PARKINSON^S DISEASE
     Dosage: UNK
     Route: 065
     Dates: end: 2018
  6. BUPROPION. [Concomitant]
     Active Substance: BUPROPION
     Indication: PARKINSON^S DISEASE
     Dosage: UNK
     Route: 065
     Dates: end: 2018

REACTIONS (1)
  - Parkinson^s disease [Unknown]
